FAERS Safety Report 11301850 (Version 2)
Quarter: 2015Q3

REPORT INFORMATION
  Report Type: Spontaneous
  Country: PT (occurrence: None)
  Receive Date: 20150722
  Receipt Date: 20150810
  Transmission Date: 20151125
  Serious: Yes (Disabling)
  Sender: FDA-Public Use
  Company Number: DEP_03200_2015

PATIENT
  Sex: Female

DRUGS (1)
  1. PALEXIA [Suspect]
     Active Substance: TAPENTADOL HYDROCHLORIDE
     Indication: PAIN
     Route: 048
     Dates: start: 20150622, end: 20150625

REACTIONS (11)
  - Abdominal pain upper [None]
  - Somnolence [None]
  - Abdominal pain [None]
  - Headache [None]
  - Plicated tongue [None]
  - Dizziness [None]
  - Pyrexia [None]
  - Visual impairment [None]
  - Constipation [None]
  - Glossodynia [None]
  - Ageusia [None]

NARRATIVE: CASE EVENT DATE: 20150623
